FAERS Safety Report 14294714 (Version 2)
Quarter: 2018Q1

REPORT INFORMATION
  Report Type: Spontaneous
  Country: FR (occurrence: FR)
  Receive Date: 20171218
  Receipt Date: 20180125
  Transmission Date: 20180509
  Serious: Yes (Disabling)
  Sender: FDA-Public Use
  Company Number: FR-ROCHE-2040536

PATIENT
  Age: 32 Year
  Sex: Male

DRUGS (38)
  1. RIVOTRIL [Suspect]
     Active Substance: CLONAZEPAM
     Indication: NECK PAIN
     Dosage: UNIT DOSE: 15 DROPS
     Route: 065
     Dates: start: 20110303, end: 20110327
  2. TETRAZEPAM [Suspect]
     Active Substance: TETRAZEPAM
     Route: 048
     Dates: start: 20110705
  3. TEMERIT [Suspect]
     Active Substance: NEBIVOLOL
     Indication: CARDIAC DISORDER
     Route: 048
     Dates: start: 20101115, end: 20110509
  4. DOLIPRANE [Concomitant]
     Active Substance: ACETAMINOPHEN
     Route: 048
     Dates: start: 20110201
  5. STRESAM [Concomitant]
     Active Substance: ETIFOXINE
     Route: 048
     Dates: start: 20120327
  6. RIVOTRIL [Suspect]
     Active Substance: CLONAZEPAM
     Indication: NECK PAIN
     Dosage: 5-8 DROPS
     Route: 065
     Dates: start: 20110219, end: 20110302
  7. RIVOTRIL [Suspect]
     Active Substance: CLONAZEPAM
     Route: 065
  8. ATARAX [Suspect]
     Active Substance: HYDROXYZINE HYDROCHLORIDE
     Indication: PRODUCT USED FOR UNKNOWN INDICATION
     Route: 048
     Dates: start: 20120131, end: 201207
  9. VALIUM [Concomitant]
     Active Substance: DIAZEPAM
     Route: 051
     Dates: start: 20101115, end: 20101115
  10. UVEDOSE [Concomitant]
     Active Substance: CHOLECALCIFEROL
     Indication: PRODUCT USED FOR UNKNOWN INDICATION
     Dosage: 1000000 IU
     Route: 065
     Dates: start: 20110219
  11. MIOREL (FRANCE) [Concomitant]
     Active Substance: METHOCARBAMOL
     Route: 048
     Dates: start: 20101210
  12. RIVOTRIL [Suspect]
     Active Substance: CLONAZEPAM
     Indication: NECK PAIN
     Route: 065
     Dates: start: 20110718, end: 201110
  13. SOLUPRED (FRANCE) [Concomitant]
     Active Substance: PREDNISOLONE
     Route: 048
     Dates: start: 20110726
  14. TETRAZEPAM [Suspect]
     Active Substance: TETRAZEPAM
     Route: 065
  15. TETRAZEPAM [Suspect]
     Active Substance: TETRAZEPAM
     Route: 065
  16. TEMERIT [Suspect]
     Active Substance: NEBIVOLOL
     Indication: CARDIAC DISORDER
     Route: 048
     Dates: start: 20110718, end: 201207
  17. SEROPRAM (CITALOPRAM HYDROBROMIDE) [Suspect]
     Active Substance: CITALOPRAM HYDROBROMIDE
     Indication: PRODUCT USED FOR UNKNOWN INDICATION
     Route: 048
     Dates: start: 20110318
  18. ATARAX [Suspect]
     Active Substance: HYDROXYZINE HYDROCHLORIDE
     Route: 065
  19. DOLIPRANE [Concomitant]
     Active Substance: ACETAMINOPHEN
     Route: 048
     Dates: start: 20110328
  20. ETIFOXINE [Concomitant]
     Active Substance: ETIFOXINE
     Route: 065
  21. PAROXETINE. [Suspect]
     Active Substance: PAROXETINE
     Route: 065
  22. TETRAZEPAM [Suspect]
     Active Substance: TETRAZEPAM
     Route: 048
     Dates: start: 20110228
  23. TEMERIT [Suspect]
     Active Substance: NEBIVOLOL
     Indication: CARDIAC DISORDER
     Route: 048
     Dates: start: 20110510, end: 201207
  24. TANGANIL [Concomitant]
     Active Substance: ACETYLLEUCINE
     Route: 048
     Dates: start: 20110303
  25. NUREFLEX [Concomitant]
     Active Substance: IBUPROFEN
     Route: 048
     Dates: start: 20101013
  26. RIVOTRIL [Suspect]
     Active Substance: CLONAZEPAM
     Route: 065
  27. LAROXYL [Suspect]
     Active Substance: AMITRIPTYLINE HYDROCHLORIDE
     Indication: NECK PAIN
     Dosage: 5-8 DROPS
     Route: 065
     Dates: start: 20110219
  28. PAROXETINE. [Suspect]
     Active Substance: PAROXETINE
     Indication: PRODUCT USED FOR UNKNOWN INDICATION
     Dosage: 2 TO 3 WEEKS
     Route: 048
     Dates: start: 20110201
  29. DOLIPRANE [Concomitant]
     Active Substance: ACETAMINOPHEN
     Route: 048
     Dates: start: 20101213
  30. RIVOTRIL [Suspect]
     Active Substance: CLONAZEPAM
     Indication: NECK PAIN
     Route: 065
     Dates: start: 20110510
  31. TETRAZEPAM [Suspect]
     Active Substance: TETRAZEPAM
     Indication: PRODUCT USED FOR UNKNOWN INDICATION
     Route: 048
     Dates: start: 20110726
  32. DI-ANTALVIC [Suspect]
     Active Substance: ACETAMINOPHEN\PROPOXYPHENE HYDROCHLORIDE
     Indication: PAIN
     Route: 048
     Dates: start: 20100606
  33. IXEL [Suspect]
     Active Substance: MILNACIPRAN HYDROCHLORIDE
     Indication: PANIC ATTACK
     Route: 048
     Dates: start: 20110322
  34. MIOREL (FRANCE) [Concomitant]
     Active Substance: METHOCARBAMOL
     Route: 048
     Dates: start: 20101213
  35. RIVOTRIL [Suspect]
     Active Substance: CLONAZEPAM
     Indication: NECK PAIN
     Dosage: 5-8 DROPS
     Route: 065
     Dates: start: 20110328
  36. MIOREL (FRANCE) [Concomitant]
     Active Substance: METHOCARBAMOL
     Route: 048
     Dates: start: 20100606
  37. MIOREL (FRANCE) [Concomitant]
     Active Substance: METHOCARBAMOL
     Route: 048
     Dates: start: 20110201
  38. PRAXINOR (FRANCE) [Concomitant]
     Route: 048
     Dates: start: 20101127

REACTIONS (23)
  - Hypoacusis [Recovered/Resolved]
  - Post-traumatic stress disorder [Recovered/Resolved]
  - Tachycardia [Recovered/Resolved]
  - Memory impairment [Recovered/Resolved]
  - Hallucination, auditory [Recovered/Resolved]
  - Drug intolerance [Recovering/Resolving]
  - Agoraphobia [Recovered/Resolved]
  - Erectile dysfunction [Recovering/Resolving]
  - Asthenia [Unknown]
  - Musculoskeletal pain [Unknown]
  - Intervertebral disc disorder [Unknown]
  - Tinnitus [Recovered/Resolved]
  - Panic attack [Recovered/Resolved]
  - Anxiety [Recovered/Resolved]
  - Visual impairment [Recovered/Resolved]
  - Pain in extremity [Unknown]
  - Hypertonia [Unknown]
  - Malaise [Recovered/Resolved]
  - Personal relationship issue [Recovered/Resolved]
  - Suicidal ideation [Recovered/Resolved]
  - Psychotic disorder [Recovered/Resolved]
  - Dyspnoea [Unknown]
  - Neurosis [Recovered/Resolved]

NARRATIVE: CASE EVENT DATE: 20110318
